FAERS Safety Report 22081054 (Version 2)
Quarter: 2023Q1

REPORT INFORMATION
  Report Type: Spontaneous
  Country: RU (occurrence: RU)
  Receive Date: 20230309
  Receipt Date: 20230322
  Transmission Date: 20230417
  Serious: Yes (Other)
  Sender: FDA-Public Use
  Company Number: RU-TEVA-2023-RU-2863425

PATIENT
  Sex: Female

DRUGS (2)
  1. IMATINIB [Suspect]
     Active Substance: IMATINIB
     Indication: Chronic myeloid leukaemia
     Dosage: 600 MILLIGRAM DAILY; ONCE A DAY
     Route: 065
     Dates: start: 201812
  2. IMATINIB [Suspect]
     Active Substance: IMATINIB
     Dosage: REDUCED TO 150-300 MG/DAY
     Route: 065
     Dates: end: 201903

REACTIONS (2)
  - Neutropenia [Not Recovered/Not Resolved]
  - Drug resistance [Unknown]
